FAERS Safety Report 18208505 (Version 2)
Quarter: 2020Q4

REPORT INFORMATION
  Report Type: Spontaneous
  Country: US (occurrence: US)
  Receive Date: 20200828
  Receipt Date: 20201026
  Transmission Date: 20210113
  Serious: Yes (Other)
  Sender: FDA-Public Use
  Company Number: US-ELI_LILLY_AND_COMPANY-US202008008223

PATIENT
  Age: 50 Year
  Sex: Male
  Weight: 61.22 kg

DRUGS (1)
  1. EMGALITY [Suspect]
     Active Substance: GALCANEZUMAB-GNLM
     Indication: CLUSTER HEADACHE
     Dosage: 300 MG, MONTHLY (1/M)
     Route: 065
     Dates: end: 20200814

REACTIONS (2)
  - Seizure [Unknown]
  - Injection site injury [Recovered/Resolved]
